FAERS Safety Report 9350430 (Version 3)
Quarter: 2014Q1

REPORT INFORMATION
  Report Type: Spontaneous
  Country: US (occurrence: US)
  Receive Date: 20130617
  Receipt Date: 20140128
  Transmission Date: 20141002
  Serious: Yes (Life-Threatening, Hospitalization, Other)
  Sender: FDA-Public Use
  Company Number: US-PFIZER INC-2013178217

PATIENT
  Age: 78 Year
  Sex: Male
  Weight: 70.75 kg

DRUGS (5)
  1. SUTENT [Suspect]
     Indication: CLEAR CELL RENAL CELL CARCINOMA
     Dosage: 50 MG, CYCLIC (1X/DAY 4 WEEKS ON, 2 WEEKS OFF)
     Route: 048
     Dates: start: 20130515, end: 20130525
  2. ACETYLSALICYLIC ACID [Concomitant]
     Dosage: 81 MG, 1X/DAY
     Route: 048
  3. VITAMIN D [Concomitant]
     Dosage: 1000 IU, 1X/DAY
     Route: 048
  4. ZOCOR [Concomitant]
     Dosage: 20 MG, BEDTIME
  5. CORTISPORIN [Concomitant]
     Dosage: 1 DROP EVERY 6 HOURS

REACTIONS (15)
  - Cardiac arrest [Recovered/Resolved]
  - Pyrexia [Recovered/Resolved]
  - Bradycardia [Recovered/Resolved]
  - Loss of consciousness [Recovered/Resolved]
  - Pancytopenia [Unknown]
  - Diarrhoea [Recovering/Resolving]
  - Fatigue [Recovering/Resolving]
  - Bundle branch block right [Unknown]
  - Thrombocytopenia [Recovered/Resolved]
  - Stomatitis [Recovering/Resolving]
  - Conjunctivitis [Unknown]
  - Nasal ulcer [Unknown]
  - Febrile neutropenia [Recovered/Resolved]
  - Epigastric discomfort [Recovering/Resolving]
  - Gastrooesophageal reflux disease [Recovering/Resolving]
